FAERS Safety Report 7998087-2 (Version None)
Quarter: 2011Q4

REPORT INFORMATION
  Report Type: 
  Country: None (occurrence: None)
  Receive Date: 20111221
  Receipt Date: 20110112
  Transmission Date: 20120403
  Serious: No
  Sender: FDA-Public Use
  Company Number: US-GLAXOSMITHKLINE-A0905432A

PATIENT
  Sex: Female

DRUGS (1)
  1. LOVAZA [Suspect]
     Indication: BLOOD TRIGLYCERIDES INCREASED
     Dosage: 4G PER DAY
     Route: 048
     Dates: start: 20090101, end: 20101211

REACTIONS (3)
  - LACERATION [None]
  - CONTUSION [None]
  - SKIN DISCOLOURATION [None]
